FAERS Safety Report 4393826-4 (Version None)
Quarter: 2004Q3

REPORT INFORMATION
  Report Type: 
  Country: None (occurrence: None)
  Receive Date: 20040707
  Receipt Date: 20040624
  Transmission Date: 20050211
  Serious: Yes (Hospitalization)
  Sender: FDA-Public Use
  Company Number: 2004-DE-02247DE

PATIENT
  Age: 49 Year
  Sex: Male

DRUGS (1)
  1. SPIRIVA [Suspect]
     Indication: ASTHMA
     Dosage: IH
     Route: 055

REACTIONS (3)
  - CHEST PAIN [None]
  - HYPERTENSION [None]
  - PAIN IN EXTREMITY [None]
